APPROVED DRUG PRODUCT: SULFINPYRAZONE
Active Ingredient: SULFINPYRAZONE
Strength: 200MG
Dosage Form/Route: CAPSULE;ORAL
Application: A088666 | Product #001
Applicant: VANGARD LABORATORIES INC DIV MIDWAY MEDICAL CO
Approved: Feb 17, 1984 | RLD: No | RS: No | Type: DISCN